FAERS Safety Report 7636820-X (Version None)
Quarter: 2011Q3

REPORT INFORMATION
  Report Type: 
  Country: None (occurrence: None)
  Receive Date: 20110726
  Receipt Date: 20110711
  Transmission Date: 20111222
  Serious: Yes (Hospitalization)
  Sender: FDA-Public Use
  Company Number: US-WATSON-2011-11014

PATIENT
  Age: 80 Year
  Sex: Female

DRUGS (3)
  1. HYDROCHLOROTHIAZIDE [Suspect]
     Indication: PRODUCT USED FOR UNKNOWN INDICATION
     Dosage: UNK
  2. POLYETHYLENE GLYCOL [Suspect]
     Indication: COLONOSCOPY
     Dosage: UNK
  3. BISACODYL [Suspect]
     Indication: COLONOSCOPY
     Dosage: UNK

REACTIONS (2)
  - HYPONATRAEMIA [None]
  - BRAIN OEDEMA [None]
